FAERS Safety Report 5127523-4 (Version None)
Quarter: 2006Q4

REPORT INFORMATION
  Report Type: 
  Country: None (occurrence: None)
  Receive Date: 20061010
  Receipt Date: 20060928
  Transmission Date: 20070319
  Serious: Yes (Other)
  Sender: FDA-Public Use
  Company Number: 2006118027

PATIENT

DRUGS (2)
  1. NORVASC [Suspect]
     Dosage: ORAL
     Route: 048
  2. BLACK VINEGAR                       (ALL OTHER NON-THERAPEUTIC PRODUCT [Suspect]
     Dosage: ORAL
     Route: 048

REACTIONS (3)
  - BLOOD PRESSURE INCREASED [None]
  - FOOD INTERACTION [None]
  - HOT FLUSH [None]
